FAERS Safety Report 8733937 (Version 3)
Quarter: 2012Q4

REPORT INFORMATION
  Report Type: 
  Country: US (occurrence: US)
  Receive Date: 20120821
  Receipt Date: 20121018
  Transmission Date: 20130627
  Serious: Yes (Other)
  Sender: FDA-Public Use
  Company Number: US-PFIZER INC-2012199476

PATIENT
  Sex: Male

DRUGS (2)
  1. LYRICA [Suspect]
     Dosage: 1 DF, 2x/day
  2. LYRICA [Suspect]
     Dosage: 1 DF, 1x/day

REACTIONS (2)
  - Cataract [Unknown]
  - Blindness unilateral [Unknown]
